FAERS Safety Report 5672421-0 (Version None)
Quarter: 2008Q1

REPORT INFORMATION
  Report Type: 
  Country: None (occurrence: None)
  Receive Date: 20080318
  Receipt Date: 20080318
  Transmission Date: 20080703
  Serious: Yes (Other)
  Sender: FDA-Public Use
  Company Number: None

PATIENT
  Sex: Female

DRUGS (2)
  1. DEPO-MEDROL [Suspect]
     Indication: BACK PAIN
  2. MARCAINE [Suspect]

REACTIONS (4)
  - DYSGEUSIA [None]
  - ERYTHEMA [None]
  - PROCEDURAL COMPLICATION [None]
  - TACHYCARDIA [None]
